FAERS Safety Report 5072025-7 (Version None)
Quarter: 2006Q3

REPORT INFORMATION
  Report Type: 
  Country: None (occurrence: None)
  Receive Date: 20060714
  Receipt Date: 20060530
  Transmission Date: 20061208
  Serious: No
  Sender: FDA-Public Use
  Company Number: 2006SP002235

PATIENT
  Age: 69 Year
  Sex: Female
  Weight: 72.5755 kg

DRUGS (8)
  1. LUNESTA [Suspect]
     Indication: INSOMNIA
     Dosage: 3 MG;HS;ORAL
     Route: 048
     Dates: start: 20060401
  2. AMBIEN [Concomitant]
  3. FENTANYL [Concomitant]
  4. LORTAB [Concomitant]
  5. ASPIRIN [Concomitant]
  6. AMLODIPINE [Concomitant]
  7. VASOTEC [Concomitant]
  8. BUSPAR [Concomitant]

REACTIONS (1)
  - MIDDLE INSOMNIA [None]
